FAERS Safety Report 5223481-2 (Version None)
Quarter: 2007Q1

REPORT INFORMATION
  Report Type: 
  Country: None (occurrence: None)
  Receive Date: 20070125
  Receipt Date: 20070111
  Transmission Date: 20070707
  Serious: Yes (Other)
  Sender: FDA-Public Use
  Company Number: L07-USA-00164-01

PATIENT
  Age: 76 Year
  Sex: Female

DRUGS (5)
  1. CITALOPRAM HYDROBROMIDE [Suspect]
     Dosage: 20 MG QD
  2. LEVOTHYROXINE SODIUM [Concomitant]
  3. OXCARBAZEPINE [Concomitant]
  4. PROPRANOLOL [Concomitant]
  5. ALPRAZOLAM [Concomitant]

REACTIONS (6)
  - BALANCE DISORDER [None]
  - CEREBROVASCULAR ACCIDENT [None]
  - CHEST PAIN [None]
  - CONVULSION [None]
  - FEELING ABNORMAL [None]
  - MEMORY IMPAIRMENT [None]
